FAERS Safety Report 24391792 (Version 1)
Quarter: 2024Q4

REPORT INFORMATION
  Report Type: Spontaneous
  Country: ES (occurrence: ES)
  Receive Date: 20241003
  Receipt Date: 20241003
  Transmission Date: 20250114
  Serious: Yes (Hospitalization)
  Sender: Unknown Manufacturer
  Company Number: ES-002147023-NVSC2023ES066118

PATIENT
  Age: 73 Year
  Sex: Male
  Weight: 63 kg

DRUGS (3)
  1. GEMCITABINE [Suspect]
     Active Substance: GEMCITABINE
     Indication: Ductal adenocarcinoma of pancreas
     Dosage: 1760 MG, QW
     Dates: start: 20221117, end: 20230316
  2. GEMCITABINE [Suspect]
     Active Substance: GEMCITABINE
     Dosage: 1760 MG, QW
     Dates: start: 20221117
  3. GEMCITABINE [Suspect]
     Active Substance: GEMCITABINE
     Dosage: 1760 MG, QW
     Dates: start: 20230330

REACTIONS (1)
  - Pneumonia [Recovered/Resolved]

NARRATIVE: CASE EVENT DATE: 20230318
